FAERS Safety Report 12190929 (Version 2)
Quarter: 2016Q2

REPORT INFORMATION
  Report Type: Report from Study
  Country: CA (occurrence: CA)
  Receive Date: 20160318
  Receipt Date: 20160513
  Transmission Date: 20160815
  Serious: Yes (Other)
  Sender: FDA-Public Use
  Company Number: CA-ROCHE-ITM201505IM016472

PATIENT
  Sex: Female
  Weight: 59 kg

DRUGS (6)
  1. SPIRIVA [Concomitant]
     Active Substance: TIOTROPIUM BROMIDE MONOHYDRATE
  2. SIMVASTATIN. [Concomitant]
     Active Substance: SIMVASTATIN
  3. ESBRIET [Suspect]
     Active Substance: PIRFENIDONE
     Indication: IDIOPATHIC PULMONARY FIBROSIS
     Route: 048
     Dates: start: 20150317, end: 20160308
  4. TELMISARTAN. [Concomitant]
     Active Substance: TELMISARTAN
  5. SYMBICORT [Concomitant]
     Active Substance: BUDESONIDE\FORMOTEROL FUMARATE DIHYDRATE
  6. VENTOLIN [Concomitant]
     Active Substance: ALBUTEROL SULFATE

REACTIONS (6)
  - Weight decreased [Not Recovered/Not Resolved]
  - Nausea [Unknown]
  - Decreased appetite [Not Recovered/Not Resolved]
  - Drug ineffective [Unknown]
  - Drug intolerance [Unknown]
  - Affective disorder [Unknown]
